FAERS Safety Report 9336959 (Version 2)
Quarter: 2013Q4

REPORT INFORMATION
  Report Type: Spontaneous
  Country: JP (occurrence: JP)
  Receive Date: 20130607
  Receipt Date: 20131004
  Transmission Date: 20140711
  Serious: Yes (Death)
  Sender: FDA-Public Use
  Company Number: JP-OTSUKA-JP-2013-12080

PATIENT
  Age: 68 Year
  Sex: Male

DRUGS (1)
  1. SAMSCA [Suspect]
     Dosage: 7.5 MG MILLIGRAM(S), DAILY DOSE
     Route: 048

REACTIONS (1)
  - Death [Fatal]
